FAERS Safety Report 6291674-1 (Version None)
Quarter: 2009Q3

REPORT INFORMATION
  Report Type: 
  Country: None (occurrence: None)
  Receive Date: 20090730
  Receipt Date: 20090720
  Transmission Date: 20100115
  Serious: Yes (Hospitalization, Other)
  Sender: FDA-Public Use
  Company Number: US-ABBOTT-09P-163-0586537-00

PATIENT
  Sex: Male

DRUGS (11)
  1. ZEMPLAR [Suspect]
     Indication: RENAL DISORDER
     Route: 048
     Dates: start: 20080301, end: 20080601
  2. ZEMPLAR [Suspect]
     Route: 048
     Dates: start: 20080601, end: 20080601
  3. ZEMPLAR [Suspect]
     Route: 048
     Dates: start: 20080601, end: 20080714
  4. AMLODIPINE [Concomitant]
     Indication: DRUG USE FOR UNKNOWN INDICATION
     Route: 048
  5. TEGRETOL-XR [Concomitant]
     Indication: DRUG USE FOR UNKNOWN INDICATION
     Route: 048
  6. LEVOXYL [Concomitant]
     Indication: DRUG USE FOR UNKNOWN INDICATION
     Route: 048
  7. ASPIRIN [Concomitant]
     Indication: DRUG USE FOR UNKNOWN INDICATION
     Dosage: LOW DOSE
  8. FUROSEMIDE [Concomitant]
     Indication: DRUG USE FOR UNKNOWN INDICATION
     Route: 048
  9. COUMADIN [Concomitant]
     Indication: DRUG USE FOR UNKNOWN INDICATION
     Dosage: MON/THUR 10MG DAILY,OTHERS 8MG DAILY
     Route: 048
  10. CRESTOR [Concomitant]
     Indication: BLOOD CHOLESTEROL INCREASED
     Route: 048
  11. GLYBURIDE [Concomitant]
     Indication: DIABETES MELLITUS
     Dosage: TAKES 5MG DAILY MAXIUM, OR LESS  MED.QD
     Route: 048

REACTIONS (3)
  - COUGH [None]
  - FLUID RETENTION [None]
  - RENAL DISORDER [None]
